FAERS Safety Report 20015608 (Version 1)
Quarter: 2021Q4

REPORT INFORMATION
  Report Type: Spontaneous
  Country: US (occurrence: None)
  Receive Date: 20211101
  Receipt Date: 20211101
  Transmission Date: 20220303
  Serious: No
  Sender: FDA-Public Use
  Company Number: None

PATIENT
  Age: 34 Year
  Sex: Female
  Weight: 103.5 kg

DRUGS (1)
  1. KYLEENA [Suspect]
     Active Substance: LEVONORGESTREL
     Indication: Contraception
     Dosage: OTHER FREQUENCY : CONTINUOUS;?
     Route: 067
     Dates: start: 20210827

REACTIONS (7)
  - Abdominal distension [None]
  - Vaginal discharge [None]
  - Fatigue [None]
  - Sluggishness [None]
  - Loss of personal independence in daily activities [None]
  - Abdominal discomfort [None]
  - Depression [None]

NARRATIVE: CASE EVENT DATE: 20210827
